FAERS Safety Report 9825758 (Version 1)
Quarter: 2013Q4

REPORT INFORMATION
  Report Type: Spontaneous
  Country: US (occurrence: None)
  Receive Date: 20131028
  Receipt Date: 20131028
  Transmission Date: 20140711
  Serious: Yes (Other)
  Sender: FDA-Public Use
  Company Number: 2013US002240

PATIENT
  Age: 75 Year
  Sex: Male
  Weight: 82 kg

DRUGS (4)
  1. ICLUSIG [Suspect]
     Indication: CHRONIC MYELOID LEUKAEMIA
     Route: 048
     Dates: start: 20130530, end: 20130723
  2. REMERON [Concomitant]
  3. XANAX [Concomitant]
  4. OXYGEN [Concomitant]

REACTIONS (3)
  - Muscular weakness [None]
  - Memory impairment [None]
  - Listless [None]
